FAERS Safety Report 7488423-8 (Version None)
Quarter: 2011Q2

REPORT INFORMATION
  Report Type: 
  Country: None (occurrence: None)
  Receive Date: 20110518
  Receipt Date: 20110504
  Transmission Date: 20111010
  Serious: Yes (Other)
  Sender: FDA-Public Use
  Company Number: CA-JNJFOC-20090403281

PATIENT
  Sex: Female
  Weight: 69 kg

DRUGS (1)
  1. REMICADE [Suspect]
     Indication: CROHN'S DISEASE
     Route: 042
     Dates: start: 20050105

REACTIONS (3)
  - DRUG EXPOSURE DURING PREGNANCY [None]
  - HERPES ZOSTER [None]
  - PRE-ECLAMPSIA [None]
